FAERS Safety Report 9105653 (Version 1)
Quarter: 2013Q1

REPORT INFORMATION
  Report Type: Spontaneous
  Country: US (occurrence: US)
  Receive Date: 20130220
  Receipt Date: 20130220
  Transmission Date: 20140127
  Serious: No
  Sender: FDA-Public Use
  Company Number: US-009507513-1302USA008853

PATIENT
  Sex: 0

DRUGS (3)
  1. VICTRELIS [Suspect]
     Dosage: UNK
  2. PEGINTRON [Suspect]
  3. RIBAVIRIN [Suspect]

REACTIONS (1)
  - Drug ineffective [Unknown]
